FAERS Safety Report 6593018-4 (Version None)
Quarter: 2010Q1

REPORT INFORMATION
  Report Type: 
  Country: None (occurrence: None)
  Receive Date: 20100218
  Receipt Date: 20100218
  Transmission Date: 20100710
  Serious: Yes (Hospitalization)
  Sender: FDA-Public Use
  Company Number: None

PATIENT
  Age: 56 Year
  Sex: Female
  Weight: 83.46 kg

DRUGS (1)
  1. DAPTOMYCIN [Suspect]
     Dosage: 500 MG EVERYDAY IV
     Route: 042
     Dates: start: 20090318, end: 20090326

REACTIONS (4)
  - BLOOD CREATINE PHOSPHOKINASE INCREASED [None]
  - MYALGIA [None]
  - NAUSEA [None]
  - VOMITING [None]
